FAERS Safety Report 19651692 (Version 1)
Quarter: 2021Q3

REPORT INFORMATION
  Report Type: Spontaneous
  Country: BR (occurrence: BR)
  Receive Date: 20210803
  Receipt Date: 20210803
  Transmission Date: 20211014
  Serious: Yes (Hospitalization)
  Sender: FDA-Public Use
  Company Number: BR-BAYER-2021-184705

PATIENT
  Age: 18 Year
  Sex: Female

DRUGS (7)
  1. CLOZAPINA [Concomitant]
     Active Substance: CLOZAPINE
     Indication: SCHIZOPHRENIA
     Dosage: UNK
     Route: 065
     Dates: start: 20180105
  2. YAZ (24+4) [Suspect]
     Active Substance: DROSPIRENONE\ETHINYL ESTRADIOL
     Indication: ACNE
     Dosage: 1 DF, QD
     Route: 048
  3. LAMOTRIGINA [Concomitant]
     Active Substance: LAMOTRIGINE
     Indication: SCHIZOPHRENIA
     Dosage: UNK
     Route: 065
     Dates: start: 20180105
  4. REVOC [RISPERIDONE] [Concomitant]
     Active Substance: RISPERIDONE
     Indication: SCHIZOPHRENIA
     Dosage: UNK
     Route: 065
     Dates: start: 20180105
  5. PURAN [Concomitant]
     Active Substance: LEVOTHYROXINE SODIUM
     Indication: SCHIZOPHRENIA
     Dosage: UNK
     Route: 065
     Dates: start: 20180105
  6. YAZ (24+4) [Suspect]
     Active Substance: DROSPIRENONE\ETHINYL ESTRADIOL
     Indication: ABDOMINAL PAIN
  7. YAZ (24+4) [Suspect]
     Active Substance: DROSPIRENONE\ETHINYL ESTRADIOL
     Indication: HEADACHE

REACTIONS (3)
  - Abdominal pain [Not Recovered/Not Resolved]
  - Migraine [Not Recovered/Not Resolved]
  - Acne [Not Recovered/Not Resolved]

NARRATIVE: CASE EVENT DATE: 20210102
